FAERS Safety Report 7456344-2 (Version None)
Quarter: 2011Q2

REPORT INFORMATION
  Report Type: 
  Country: None (occurrence: None)
  Receive Date: 20110503
  Receipt Date: 20110322
  Transmission Date: 20111010
  Serious: Yes (Hospitalization, Other)
  Sender: FDA-Public Use
  Company Number: US-BAYER-201012549NA

PATIENT
  Age: 31 Year
  Sex: Female
  Weight: 84 kg

DRUGS (5)
  1. YAZ [Suspect]
     Dosage: 1 DF (DAILY DOSE), QD, ORAL
     Route: 048
  2. YASMIN [Suspect]
     Indication: METRORRHAGIA
     Dosage: 1 DF (DAILY DOSE), QD, ORAL
     Route: 048
  3. ALLEGRA [Concomitant]
  4. NAPROXEN [Concomitant]
  5. ALBUTEROL INHALER [Concomitant]

REACTIONS (3)
  - CHOLECYSTECTOMY [None]
  - INJURY [None]
  - BILIARY DYSKINESIA [None]
